FAERS Safety Report 5974073-9 (Version None)
Quarter: 2008Q4

REPORT INFORMATION
  Report Type: 
  Country: None (occurrence: None)
  Receive Date: 20081125
  Receipt Date: 20081117
  Transmission Date: 20090506
  Serious: Yes (Other)
  Sender: FDA-Public Use
  Company Number: 2008SP022303

PATIENT

DRUGS (1)
  1. DESLORATADINE [Suspect]
     Indication: URTICARIA
     Dosage: ; QD;
     Dates: start: 20070701, end: 20081001

REACTIONS (5)
  - BILIRUBIN CONJUGATED INCREASED [None]
  - BLOOD BILIRUBIN INCREASED [None]
  - GLUCOSE-6-PHOSPHATE DEHYDROGENASE ABNORMAL [None]
  - HAEMATOCRIT ABNORMAL [None]
  - RED BLOOD CELL COUNT INCREASED [None]
